FAERS Safety Report 4282117-8 (Version None)
Quarter: 2004Q1

REPORT INFORMATION
  Report Type: 
  Country: None (occurrence: None)
  Receive Date: 20040130
  Receipt Date: 20030808
  Transmission Date: 20041129
  Serious: No
  Sender: FDA-Public Use
  Company Number: US-BRISTOL-MYERS SQUIBB COMPANY-12349957

PATIENT
  Age: 58 Year
  Sex: Female
  Weight: 57 kg

DRUGS (12)
  1. DESYREL [Suspect]
     Indication: INSOMNIA
     Dosage: 75 MG (1/2 OF A 150 MG TABLET) ONCE DAILY AT NIGHT.
     Route: 048
  2. UNITHROID [Concomitant]
  3. ESTRADIOL [Concomitant]
  4. TESTOSTERONE [Concomitant]
     Dosage: ^TESTERONE CREAM COMPOUND^
     Route: 061
  5. CALCIUM [Concomitant]
  6. GLUCOSAMINE [Concomitant]
  7. BOSWELLIA [Concomitant]
  8. MULTI-VITAMIN [Concomitant]
  9. GARLIC [Concomitant]
  10. VITAMIN C [Concomitant]
  11. VITAMIN E [Concomitant]
  12. FISH OIL [Concomitant]

REACTIONS (1)
  - THERAPEUTIC RESPONSE DECREASED [None]
